FAERS Safety Report 13267210 (Version 1)
Quarter: 2017Q1

REPORT INFORMATION
  Report Type: Spontaneous
  Country: CA (occurrence: CA)
  Receive Date: 20170224
  Receipt Date: 20170224
  Transmission Date: 20170428
  Serious: Yes (Disabling, Other)
  Sender: FDA-Public Use
  Company Number: CA-ORION CORPORATION ORION PHARMA-TREX2017-0604

PATIENT
  Age: 67 Year
  Sex: Female

DRUGS (3)
  1. CYMBALTA [Concomitant]
     Active Substance: DULOXETINE HYDROCHLORIDE
     Route: 065
  2. METHOTREXATE (TRADE NAME UNKNOWN) [Suspect]
     Active Substance: METHOTREXATE
     Indication: RHEUMATOID ARTHRITIS
     Route: 065
  3. ACTONEL [Concomitant]
     Active Substance: RISEDRONATE SODIUM
     Route: 065

REACTIONS (3)
  - Incoherent [Unknown]
  - Pelvic fracture [Unknown]
  - Transient ischaemic attack [Unknown]
